FAERS Safety Report 8070752-0 (Version None)
Quarter: 2012Q1

REPORT INFORMATION
  Report Type: 
  Country: None (occurrence: None)
  Receive Date: 20120125
  Receipt Date: 20120118
  Transmission Date: 20120608
  Serious: Yes (Other)
  Sender: FDA-Public Use
  Company Number: CA-JNJFOC-20120110092

PATIENT
  Sex: Female
  Weight: 68.95 kg

DRUGS (3)
  1. CELEXA [Concomitant]
     Indication: DEPRESSION
     Route: 065
     Dates: start: 20110801, end: 20111001
  2. ESCITALOPRAM [Concomitant]
     Indication: DEPRESSION
     Route: 048
     Dates: start: 20111001
  3. ELMIRON [Suspect]
     Indication: CYSTITIS INTERSTITIAL
     Route: 048
     Dates: start: 20120103

REACTIONS (4)
  - MEMORY IMPAIRMENT [None]
  - FATIGUE [None]
  - DEPRESSION [None]
  - ANXIETY [None]
